FAERS Safety Report 12326990 (Version 1)
Quarter: 2016Q2

REPORT INFORMATION
  Report Type: Spontaneous
  Country: US (occurrence: None)
  Receive Date: 20160502
  Receipt Date: 20160502
  Transmission Date: 20160815
  Serious: Yes (Life-Threatening, Hospitalization, Other)
  Sender: FDA-Public Use
  Company Number: None

PATIENT
  Age: 64 Year
  Sex: Female
  Weight: 54.43 kg

DRUGS (2)
  1. VENTOLIN HFA [Suspect]
     Active Substance: ALBUTEROL SULFATE
     Indication: REACTIVE AIRWAYS DYSFUNCTION SYNDROME
  2. VITAMIN [Concomitant]
     Active Substance: VITAMINS

REACTIONS (1)
  - Arteriospasm coronary [None]

NARRATIVE: CASE EVENT DATE: 20150606
